FAERS Safety Report 24607988 (Version 3)
Quarter: 2024Q4

REPORT INFORMATION
  Report Type: Spontaneous
  Country: JP (occurrence: JP)
  Receive Date: 20241112
  Receipt Date: 20241209
  Transmission Date: 20250115
  Serious: Yes (Other)
  Sender: NOVARTIS
  Company Number: JP-002147023-NVSJ2024JP013270

PATIENT
  Sex: Female
  Weight: 2.568 kg

DRUGS (10)
  1. CYCLOSPORINE [Suspect]
     Active Substance: CYCLOSPORINE
     Indication: Foetal exposure during pregnancy
     Dosage: MATERNAL EXPOSURE DURING PREGNANCY: 90 MG/DAY
     Route: 064
  2. CYCLOSPORINE [Suspect]
     Active Substance: CYCLOSPORINE
     Indication: Exposure via breast milk
     Dosage: MATERNAL EXPOSURE DURING PREGNANCY:UNK, DOSE INCREASED
     Route: 064
  3. CYCLOSPORINE [Suspect]
     Active Substance: CYCLOSPORINE
     Dosage: MATERNAL EXPOSURE DURING PREGNANCY: 200 MG/DAY
     Route: 064
  4. CYCLOSPORINE [Suspect]
     Active Substance: CYCLOSPORINE
     Dosage: UNK
     Route: 050
  5. PREDNISOLONE [Concomitant]
     Active Substance: PREDNISOLONE
     Indication: Foetal exposure during pregnancy
     Dosage: MATERNAL EXPOSURE DURING PREGNANCY: 45 MG/DAY
     Route: 064
  6. PREDNISOLONE [Concomitant]
     Active Substance: PREDNISOLONE
     Indication: Exposure via breast milk
     Dosage: MATERNAL EXPOSURE DURING PREGNANCY: 40 MG/DAY
     Route: 064
  7. PREDNISOLONE [Concomitant]
     Active Substance: PREDNISOLONE
     Dosage: MATERNAL EXPOSURE DURING PREGNANCY: DOSE REDUCTION BY 2.5 MG/DAY EVERY 1 TO 2 WEEKS
     Route: 064
  8. PREDNISOLONE [Concomitant]
     Active Substance: PREDNISOLONE
     Dosage: MATERNAL EXPOSURE DURING PREGNANCY: 25 MG/DAY
     Route: 064
  9. PREDNISOLONE [Concomitant]
     Active Substance: PREDNISOLONE
     Dosage: UNK
     Route: 050
  10. INSULIN HUMAN [Concomitant]
     Active Substance: INSULIN HUMAN
     Indication: Foetal exposure during pregnancy
     Dosage: MATERNAL EXPOSURE DURING PREGNANCY: UNK
     Route: 064

REACTIONS (3)
  - Foetal heart rate deceleration abnormality [Unknown]
  - Foetal exposure during pregnancy [Unknown]
  - Exposure via breast milk [Unknown]
